FAERS Safety Report 5088704-1 (Version None)
Quarter: 2006Q3

REPORT INFORMATION
  Report Type: 
  Country: None (occurrence: None)
  Receive Date: 20060825
  Receipt Date: 20050512
  Transmission Date: 20061208
  Serious: Yes (Hospitalization, Other)
  Sender: FDA-Public Use
  Company Number: US-AVENTIS-200514161US

PATIENT
  Age: 70 Year
  Sex: Male

DRUGS (6)
  1. ARAVA [Suspect]
     Indication: TRANSPLANT
     Dosage: DOSE: UNK
  2. PROGRAF [Suspect]
     Indication: PROPHYLAXIS
     Route: 048
  3. PREDNISONE [Concomitant]
     Dosage: DOSE: UNK
  4. NORVASC [Concomitant]
     Dosage: DOSE: UNK
  5. PROTONIX [Concomitant]
     Dosage: DOSE: UNK
  6. METOPROLOL TARTRATE [Concomitant]
     Dosage: DOSE: UNK

REACTIONS (2)
  - LUNG INFILTRATION [None]
  - PULMONARY HAEMORRHAGE [None]
